FAERS Safety Report 6149260-X (Version None)
Quarter: 2009Q2

REPORT INFORMATION
  Report Type: 
  Country: None (occurrence: None)
  Receive Date: 20090409
  Receipt Date: 20090326
  Transmission Date: 20091009
  Serious: Yes (Other)
  Sender: FDA-Public Use
  Company Number: PHHY2009IT11908

PATIENT
  Age: 34 Year
  Sex: Female

DRUGS (3)
  1. IMATINIB MESYLATE [Suspect]
     Indication: CHRONIC MYELOID LEUKAEMIA
     Dosage: 600 MG, QD
     Dates: start: 20030401
  2. IMATINIB MESYLATE [Suspect]
     Dosage: 400 MG, QD
     Dates: start: 20070201, end: 20070501
  3. IMATINIB MESYLATE [Suspect]
     Dosage: 600 MG, QD
     Dates: start: 20070501

REACTIONS (7)
  - BLAST CRISIS IN MYELOGENOUS LEUKAEMIA [None]
  - BONE MARROW TRANSPLANT [None]
  - CHRONIC GRAFT VERSUS HOST DISEASE [None]
  - DRUG INEFFECTIVE [None]
  - HAEMATOTOXICITY [None]
  - HEPATIC ENZYME INCREASED [None]
  - HEPATIC FUNCTION ABNORMAL [None]
